FAERS Safety Report 12557676 (Version 1)
Quarter: 2016Q3

REPORT INFORMATION
  Report Type: Spontaneous
  Country: US (occurrence: US)
  Receive Date: 20160714
  Receipt Date: 20160714
  Transmission Date: 20161109
  Serious: Yes (Hospitalization)
  Sender: FDA-Public Use
  Company Number: US-JNJFOC-20160703816

PATIENT
  Age: 17 Year
  Sex: Female

DRUGS (9)
  1. ORTHO TRI CYCLEN LO [Suspect]
     Active Substance: ETHINYL ESTRADIOL\NORGESTIMATE
     Indication: CONTRACEPTION
     Dosage: ABOUT 3 YEARS AGO (FROM TIME OF REPORT)
     Route: 048
     Dates: end: 2016
  2. ORTHO TRI CYCLEN LO [Suspect]
     Active Substance: ETHINYL ESTRADIOL\NORGESTIMATE
     Indication: ACNE
     Route: 048
     Dates: start: 2016
  3. ORTHO TRI CYCLEN LO [Suspect]
     Active Substance: ETHINYL ESTRADIOL\NORGESTIMATE
     Indication: ACNE
     Dosage: ABOUT 3 YEARS AGO (FROM TIME OF REPORT)
     Route: 048
     Dates: end: 2016
  4. NORGESTIMATE AND ETHINYL ESTRADIOL [Suspect]
     Active Substance: ETHINYL ESTRADIOL\NORGESTIMATE
     Indication: MENORRHAGIA
     Dosage: ABOUT 3-4 MONTHS AGO (FROM TIME OF REPORT)
     Route: 048
     Dates: start: 2016, end: 2016
  5. ORTHO TRI CYCLEN LO [Suspect]
     Active Substance: ETHINYL ESTRADIOL\NORGESTIMATE
     Indication: MENORRHAGIA
     Dosage: ABOUT 3 YEARS AGO (FROM TIME OF REPORT)
     Route: 048
     Dates: end: 2016
  6. NORGESTIMATE AND ETHINYL ESTRADIOL [Suspect]
     Active Substance: ETHINYL ESTRADIOL\NORGESTIMATE
     Indication: ACNE
     Dosage: ABOUT 3-4 MONTHS AGO (FROM TIME OF REPORT)
     Route: 048
     Dates: start: 2016, end: 2016
  7. ORTHO TRI CYCLEN LO [Suspect]
     Active Substance: ETHINYL ESTRADIOL\NORGESTIMATE
     Indication: CONTRACEPTION
     Route: 048
     Dates: start: 2016
  8. NORGESTIMATE AND ETHINYL ESTRADIOL [Suspect]
     Active Substance: ETHINYL ESTRADIOL\NORGESTIMATE
     Indication: CONTRACEPTION
     Dosage: ABOUT 3-4 MONTHS AGO (FROM TIME OF REPORT)
     Route: 048
     Dates: start: 2016, end: 2016
  9. ORTHO TRI CYCLEN LO [Suspect]
     Active Substance: ETHINYL ESTRADIOL\NORGESTIMATE
     Indication: MENORRHAGIA
     Route: 048
     Dates: start: 2016

REACTIONS (8)
  - Injury [Recovered/Resolved]
  - Alopecia [Unknown]
  - Vertigo [Unknown]
  - Scarlet fever [Unknown]
  - Pharyngitis streptococcal [Unknown]
  - Road traffic accident [Recovered/Resolved]
  - Sinusitis [Unknown]
  - Anaemia [Unknown]

NARRATIVE: CASE EVENT DATE: 201502
